FAERS Safety Report 9644198 (Version 1)
Quarter: 2013Q4

REPORT INFORMATION
  Report Type: Report from Study
  Country: ES (occurrence: ES)
  Receive Date: 20131024
  Receipt Date: 20131024
  Transmission Date: 20140711
  Serious: Yes (Hospitalization)
  Sender: FDA-Public Use
  Company Number: ES-ROCHE-1292569

PATIENT
  Age: 66 Year
  Sex: Female

DRUGS (6)
  1. MYCOPHENOLATE MOFETIL [Suspect]
     Indication: LIVER TRANSPLANT
     Route: 048
     Dates: start: 201101, end: 20120917
  2. ENALAPRIL MALEATE [Suspect]
     Indication: HYPERTENSION
     Route: 048
     Dates: start: 201106, end: 20120917
  3. SPIRONOLACTON [Suspect]
     Indication: ASCITES
     Route: 048
     Dates: start: 20120827, end: 20120917
  4. SIROLIMUS [Suspect]
     Indication: LIVER TRANSPLANT
     Route: 048
     Dates: start: 201208, end: 20120917
  5. PROPRANOLOL HYDROCHLORIDE [Suspect]
     Indication: PROPHYLAXIS
     Route: 048
     Dates: start: 201208
  6. LEVOTHYROXINE SODIUM [Suspect]
     Indication: HYPOTHYROIDISM
     Route: 048
     Dates: start: 2006, end: 20120917

REACTIONS (2)
  - Renal failure acute [Recovered/Resolved]
  - Hyperkalaemia [Recovered/Resolved]
